FAERS Safety Report 4933668-1 (Version None)
Quarter: 2006Q1

REPORT INFORMATION
  Report Type: 
  Country: None (occurrence: None)
  Receive Date: 20060306
  Receipt Date: 20060302
  Transmission Date: 20060701
  Serious: Yes (Other)
  Sender: FDA-Public Use
  Company Number: 9681138-2006-00004

PATIENT
  Age: 40 Year
  Sex: Female

DRUGS (16)
  1. SUPER POLIGRIP EXTRA CARE WITH POLISEAL [Suspect]
     Indication: TOOTH DISORDER
     Dates: start: 20060101, end: 20060227
  2. PREMARIN [Concomitant]
  3. DIAMOX [Concomitant]
  4. ALTACE [Concomitant]
  5. B2 [Concomitant]
  6. POTASSIUM CHLORIDE [Concomitant]
  7. PROTONIX [Concomitant]
  8. MAGNESIUM OXIDE [Concomitant]
  9. AMARYL [Concomitant]
  10. EFFEXOR [Concomitant]
  11. AMBIEN [Concomitant]
  12. DOXEPIN [Concomitant]
  13. FLURAZEPAM [Concomitant]
  14. CHLORPHENIRAMINE MALEATE AND PSEUDOEPHEDRINE HCL [Concomitant]
  15. VICODIN [Concomitant]
  16. ALBUTEROL [Concomitant]

REACTIONS (5)
  - BLOOD GLUCOSE INCREASED [None]
  - CONVULSION [None]
  - DYSPNOEA [None]
  - PLEURITIC PAIN [None]
  - RESPIRATORY DISTRESS [None]
